APPROVED DRUG PRODUCT: KETOROLAC TROMETHAMINE
Active Ingredient: KETOROLAC TROMETHAMINE
Strength: 15MG/ML
Dosage Form/Route: INJECTABLE;INJECTION
Application: A091065 | Product #001 | TE Code: AP
Applicant: SAGENT PHARMACEUTICALS INC
Approved: Nov 27, 2013 | RLD: No | RS: No | Type: RX